FAERS Safety Report 10463484 (Version 1)
Quarter: 2014Q3

REPORT INFORMATION
  Report Type: Spontaneous
  Country: US (occurrence: None)
  Receive Date: 20140917
  Receipt Date: 20140917
  Transmission Date: 20150326
  Serious: Yes (Hospitalization, Other)
  Sender: FDA-Public Use
  Company Number: ADR-2014-01664

PATIENT
  Age: 68 Year
  Sex: Female

DRUGS (2)
  1. BACLOFEN INTRATHECAL [Suspect]
     Active Substance: BACLOFEN
     Indication: PAIN
  2. MORPHINE INTRATHECAL [Suspect]
     Active Substance: MORPHINE
     Indication: PAIN

REACTIONS (3)
  - Device breakage [None]
  - Somnolence [None]
  - Procedural complication [None]

NARRATIVE: CASE EVENT DATE: 20140904
